FAERS Safety Report 10787173 (Version 1)
Quarter: 2015Q1

REPORT INFORMATION
  Report Type: Report from Study
  Country: US (occurrence: US)
  Receive Date: 20150211
  Receipt Date: 20150211
  Transmission Date: 20150721
  Serious: Yes (Other)
  Sender: FDA-Public Use
  Company Number: US-INTERMUNE, INC.-201502IM009662

PATIENT
  Age: 87 Year
  Sex: Female

DRUGS (1)
  1. ESBRIET [Suspect]
     Active Substance: PIRFENIDONE
     Indication: IDIOPATHIC PULMONARY FIBROSIS
     Route: 048
     Dates: start: 20150128, end: 20150204

REACTIONS (7)
  - Swelling face [Unknown]
  - Epistaxis [Unknown]
  - Nausea [Unknown]
  - Dizziness [Unknown]
  - Swollen tongue [Unknown]
  - Tremor [Unknown]
  - Frequent bowel movements [Unknown]

NARRATIVE: CASE EVENT DATE: 2015
